FAERS Safety Report 24194405 (Version 1)
Quarter: 2024Q3

REPORT INFORMATION
  Report Type: Spontaneous
  Country: US (occurrence: None)
  Receive Date: 20240808
  Receipt Date: 20240808
  Transmission Date: 20241016
  Serious: Yes (Hospitalization)
  Sender: Public
  Company Number: None

PATIENT
  Age: 61 Year
  Sex: Female

DRUGS (1)
  1. IBRANCE [Suspect]
     Active Substance: PALBOCICLIB
     Indication: Metastases to bone
     Dosage: OTHER FREQUENCY : QD21DAYSON,7DAYS OFF ;?
     Route: 048

REACTIONS (8)
  - Insurance issue [None]
  - Product dose omission in error [None]
  - Alopecia [None]
  - Alopecia [None]
  - Pain [None]
  - Fatigue [None]
  - Weight decreased [None]
  - Gastrointestinal haemorrhage [None]
